FAERS Safety Report 7072932-X (Version None)
Quarter: 2010Q4

REPORT INFORMATION
  Report Type: 
  Country: None (occurrence: None)
  Receive Date: 20101029
  Receipt Date: 20100401
  Transmission Date: 20110411
  Serious: No
  Sender: FDA-Public Use
  Company Number: A0852998A

PATIENT
  Age: 81 Year
  Sex: Male

DRUGS (14)
  1. ADVAIR DISKUS 100/50 [Suspect]
     Indication: CHRONIC OBSTRUCTIVE PULMONARY DISEASE
     Dosage: 1PUFF TWICE PER DAY
     Route: 055
     Dates: start: 20081201
  2. ATENOLOL [Concomitant]
  3. PAROXETINE HCL [Concomitant]
  4. NITROGLYCERIN [Concomitant]
  5. SIMVASTATIN [Concomitant]
  6. FOSINOPRIL SODIUM [Concomitant]
  7. ALBUTEROL [Concomitant]
  8. TAMSULOSIN [Concomitant]
  9. SINGULAIR [Concomitant]
  10. ALENDRONATE SODIUM [Concomitant]
  11. NEBULIZER [Concomitant]
  12. BROMURE IPRATROPIUM [Concomitant]
  13. VITAMINS [Concomitant]
  14. MULTI-VITAMINS [Concomitant]

REACTIONS (2)
  - DYSPHONIA [None]
  - DYSPNOEA [None]
